FAERS Safety Report 21433678 (Version 1)
Quarter: 2022Q4

REPORT INFORMATION
  Report Type: Spontaneous
  Country: US (occurrence: US)
  Receive Date: 20221010
  Receipt Date: 20221010
  Transmission Date: 20230113
  Serious: No
  Sender: FDA-Public Use
  Company Number: ENDG22-04687

PATIENT
  Sex: Female

DRUGS (4)
  1. CHOLESTYRAMINE LIGHT [Suspect]
     Active Substance: CHOLESTYRAMINE
     Indication: Diarrhoea
     Dosage: UNK UNKNOWN, UNKNOWN
     Route: 065
     Dates: start: 2012
  2. CHOLESTYRAMINE LIGHT [Suspect]
     Active Substance: CHOLESTYRAMINE
     Dosage: UNK UNKNOWN, UNKNOWN, (FULL PACKET)
     Route: 065
  3. CHOLESTYRAMINE LIGHT [Suspect]
     Active Substance: CHOLESTYRAMINE
     Dosage: UNK UNKNOWN, UNKNOWN, (LOWERED DOSE)
     Route: 065
  4. CHOLESTYRAMINE LIGHT [Suspect]
     Active Substance: CHOLESTYRAMINE
     Dosage: UNK UNKNOWN, OD, (TO FIND CORRECT DOSE, SOMETIMES SHE WOULD TAKE EXTRA AS NEEDED)
     Route: 065

REACTIONS (4)
  - Pain [Recovered/Resolved]
  - Constipation [Recovered/Resolved]
  - Intentional product use issue [Unknown]
  - Off label use [Unknown]

NARRATIVE: CASE EVENT DATE: 20120101
